FAERS Safety Report 6776768-6 (Version None)
Quarter: 2010Q2

REPORT INFORMATION
  Report Type: 
  Country: None (occurrence: None)
  Receive Date: 20100617
  Receipt Date: 20100617
  Transmission Date: 20101027
  Serious: Yes (Hospitalization)
  Sender: FDA-Public Use
  Company Number: None

PATIENT
  Age: 86 Year
  Sex: Male

DRUGS (7)
  1. NEXIUM [Suspect]
     Indication: PROPHYLAXIS AGAINST GASTROINTESTINAL ULCER
     Dates: start: 20100118, end: 20100210
  2. URSODIOL [Concomitant]
  3. SIMVASTATIN [Concomitant]
  4. METOPROLOL TARTRATE [Concomitant]
  5. IPRATROPIUM BROMIDE AND ALBUTEROL SULFATE [Concomitant]
  6. INSULIN ASPART CORRECTION SCALE [Concomitant]
  7. ENALAPRIL MALEATE [Concomitant]

REACTIONS (4)
  - ANAEMIA [None]
  - HAEMATURIA [None]
  - THROMBOCYTOPENIA [None]
  - WHITE BLOOD CELL COUNT DECREASED [None]
